FAERS Safety Report 12377199 (Version 1)
Quarter: 2016Q2

REPORT INFORMATION
  Report Type: Report from Study
  Country: US (occurrence: US)
  Receive Date: 20160517
  Receipt Date: 20160517
  Transmission Date: 20160815
  Serious: No
  Sender: FDA-Public Use
  Company Number: US-MALLINCKRODT-T201504942

PATIENT
  Age: 57 Year
  Sex: Male

DRUGS (1)
  1. REPOSITORY CORTICOTROPIN INJECTION [Suspect]
     Active Substance: CORTICOTROPIN
     Indication: RHEUMATOID ARTHRITIS
     Dosage: 80 U 1X EVERY 2 WEEKS
     Dates: start: 20150902, end: 20150930

REACTIONS (1)
  - Arthralgia [Not Recovered/Not Resolved]

NARRATIVE: CASE EVENT DATE: 20150930
